FAERS Safety Report 7865951-4 (Version None)
Quarter: 2011Q4

REPORT INFORMATION
  Report Type: 
  Country: None (occurrence: None)
  Receive Date: 20111028
  Receipt Date: 20110324
  Transmission Date: 20120403
  Serious: No
  Sender: FDA-Public Use
  Company Number: US-GLAXOSMITHKLINE-A0919843A

PATIENT
  Sex: Female

DRUGS (4)
  1. ADVAIR DISKUS 100/50 [Suspect]
     Indication: LUNG NEOPLASM MALIGNANT
     Dosage: 1PUFF TWICE PER DAY
     Route: 055
     Dates: start: 20100901, end: 20110101
  2. ASPIRIN [Concomitant]
  3. VITAMIN TAB [Concomitant]
  4. VENTOLIN [Concomitant]

REACTIONS (1)
  - SWOLLEN TONGUE [None]
